FAERS Safety Report 18911951 (Version 2)
Quarter: 2021Q2

REPORT INFORMATION
  Report Type: Spontaneous
  Country: JP (occurrence: JP)
  Receive Date: 20210219
  Receipt Date: 20210519
  Transmission Date: 20210717
  Serious: Yes (Hospitalization)
  Sender: FDA-Public Use
  Company Number: JP-CELLTRION INC.-2021JP001910

PATIENT

DRUGS (15)
  1. INFLIXIMAB BS FOR I.V. INFUSION100 MG [NK] [Suspect]
     Active Substance: INFLIXIMAB
     Dosage: IN EARLY FEB (05FEB?08FEB), SWITCH TO A REGIMEN WITH A SHORTER INTERVAL (I.E. EVERY 4 WEEKS)
  2. CHOLEBINE [Concomitant]
     Active Substance: COLESTILAN CHLORIDE
     Indication: CROHN^S DISEASE
     Dosage: UNK
     Dates: start: 20190131
  3. MIYA?BM [Concomitant]
     Active Substance: CLOSTRIDIUM BUTYRICUM SPORES STRAIN M-55
     Indication: CROHN^S DISEASE
     Dosage: UNK
  4. FAMOTIDINE. [Concomitant]
     Active Substance: FAMOTIDINE
     Indication: PREMEDICATION
     Dosage: 20 MG
  5. NEXIUM [Concomitant]
     Active Substance: ESOMEPRAZOLE MAGNESIUM
     Indication: NAUSEA
  6. BEPOTASTINE [Concomitant]
     Active Substance: BEPOTASTINE
     Indication: PREMEDICATION
     Dosage: 10 MG
  7. INFLIXIMAB BS FOR I.V. INFUSION100 MG [NK] [Suspect]
     Active Substance: INFLIXIMAB
     Indication: INFLAMMATORY BOWEL DISEASE
     Dosage: ONGOING FOR AT LEAST 1 YEAR
  8. INFLIXIMAB BS FOR I.V. INFUSION100 MG [NK] [Suspect]
     Active Substance: INFLIXIMAB
     Dosage: 300 MILLIGRAM, QD
     Route: 041
     Dates: start: 20210208, end: 20210208
  9. PENTASA [Concomitant]
     Active Substance: MESALAMINE
     Indication: CROHN^S DISEASE
     Dosage: UNK
  10. NEXIUM [Concomitant]
     Active Substance: ESOMEPRAZOLE MAGNESIUM
     Indication: ABDOMINAL PAIN UPPER
     Dosage: UNK
     Dates: start: 20200720
  11. ZEBIAX [Concomitant]
     Indication: ACNE
     Dosage: UNK
     Dates: start: 20200817, end: 20201012
  12. CALONAL [Concomitant]
     Active Substance: ACETAMINOPHEN
     Indication: PREMEDICATION
     Dosage: 400 MG
  13. INFLIXIMAB BS FOR I.V. INFUSION100 MG [NK] [Suspect]
     Active Substance: INFLIXIMAB
     Indication: CROHN^S DISEASE
     Dosage: THERAPY AT 8?WEEK INTERVAL
  14. DIFFERIN [Concomitant]
     Active Substance: ADAPALENE
     Indication: ACNE
     Dosage: UNK
     Dates: start: 20200625
  15. HIRUDOID [Concomitant]
     Active Substance: GLYCOSAMINOGLYCANS
     Indication: ACNE
     Dosage: UNK
     Dates: start: 20200817

REACTIONS (5)
  - Acne [Unknown]
  - Infusion related reaction [Recovered/Resolved]
  - Off label use [Unknown]
  - Overdose [Unknown]
  - Therapeutic response decreased [Unknown]

NARRATIVE: CASE EVENT DATE: 2019
